FAERS Safety Report 9437696 (Version 1)
Quarter: 2013Q3

REPORT INFORMATION
  Report Type: Spontaneous
  Country: HR (occurrence: HR)
  Receive Date: 20130802
  Receipt Date: 20130802
  Transmission Date: 20140515
  Serious: Yes (Other)
  Sender: FDA-Public Use
  Company Number: HR-009507513-1307HRV016328

PATIENT
  Sex: Male
  Weight: 82 kg

DRUGS (5)
  1. PRINZIDE 20 MG /12.5 MG TABLETE [Suspect]
     Indication: BLOOD PRESSURE INCREASED
     Dosage: 0.5 DF, QD
     Route: 048
     Dates: start: 2008
  2. LACIPIL [Suspect]
     Indication: BLOOD PRESSURE INCREASED
     Dosage: 4 MG, QD
     Route: 048
     Dates: start: 2008
  3. LANITOP [Concomitant]
     Dosage: 0.1 MG, UNK
     Route: 048
     Dates: start: 2011
  4. PROSCAR 5MG [Concomitant]
     Dosage: 5 MG, QD
     Route: 048
     Dates: start: 2008
  5. ASPIRIN PROTECT [Concomitant]
     Dosage: 1 DF, QD
     Route: 048
     Dates: start: 2011

REACTIONS (6)
  - Choking [Not Recovered/Not Resolved]
  - Lip swelling [Not Recovered/Not Resolved]
  - Throat irritation [Not Recovered/Not Resolved]
  - Fatigue [Not Recovered/Not Resolved]
  - Fatigue [Not Recovered/Not Resolved]
  - Fear [Not Recovered/Not Resolved]
